FAERS Safety Report 10261209 (Version 1)
Quarter: 2014Q2

REPORT INFORMATION
  Report Type: Spontaneous
  Country: GB (occurrence: GB)
  Receive Date: 20140626
  Receipt Date: 20140626
  Transmission Date: 20141212
  Serious: Yes (Death)
  Sender: FDA-Public Use
  Company Number: GB-BAUSCH-BL-2014-002932

PATIENT
  Age: 62 Year
  Sex: Female

DRUGS (3)
  1. PREDNISOLONE [Suspect]
     Indication: IMMUNOSUPPRESSION
  2. NEORAL [Suspect]
     Indication: IMMUNOSUPPRESSION
  3. NEORAL [Suspect]

REACTIONS (1)
  - Death [Fatal]
